FAERS Safety Report 16651486 (Version 1)
Quarter: 2019Q3

REPORT INFORMATION
  Report Type: Report from Study
  Country: FR (occurrence: FR)
  Receive Date: 20190731
  Receipt Date: 20190731
  Transmission Date: 20191004
  Serious: Yes (Other)
  Sender: FDA-Public Use
  Company Number: FR-PFIZER INC-2019321400

PATIENT

DRUGS (4)
  1. METHOTREXATE SODIUM. [Suspect]
     Active Substance: METHOTREXATE SODIUM
     Indication: DESMOID TUMOUR
     Dosage: 30 MG/M2, WEEKLY (FOR 6 MONTHS)
     Route: 042
  2. VINBLASTINE [Suspect]
     Active Substance: VINBLASTINE
     Indication: DESMOID TUMOUR
     Dosage: 5 MG/M2, WEEKLY (FOR 6 MONTHS)
     Route: 042
  3. METHOTREXATE SODIUM. [Suspect]
     Active Substance: METHOTREXATE SODIUM
     Dosage: 30 MG/M2, CYCLIC (THEN EVERY 2 WEEKS FOR 6 MONTHS)
     Route: 042
  4. VINBLASTINE [Suspect]
     Active Substance: VINBLASTINE
     Dosage: 5 MG/M2, CYCLIC (THEN EVERY 2 WEEKS FOR 6 MONTHS)
     Route: 042

REACTIONS (1)
  - Paraesthesia [Unknown]
